FAERS Safety Report 9983888 (Version 1)
Quarter: 2014Q1

REPORT INFORMATION
  Report Type: Spontaneous
  Country: US (occurrence: US)
  Receive Date: 20140307
  Receipt Date: 20140307
  Transmission Date: 20141002
  Serious: Yes (Hospitalization)
  Sender: FDA-Public Use
  Company Number: US-ABBVIE-13P-163-1183920-00

PATIENT
  Age: 52 Year
  Sex: Female

DRUGS (5)
  1. HUMIRA [Suspect]
     Indication: CROHN^S DISEASE
     Dates: start: 201306
  2. HUMIRA [Suspect]
     Dates: start: 20131111
  3. TYSABRI [Concomitant]
     Indication: CROHN^S DISEASE
  4. TYSABRI [Concomitant]
  5. REMICADE [Concomitant]
     Indication: CROHN^S DISEASE

REACTIONS (3)
  - Clostridium difficile infection [Unknown]
  - Crohn^s disease [Unknown]
  - Clostridium difficile infection [Recovering/Resolving]
